FAERS Safety Report 4537231-6 (Version None)
Quarter: 2004Q4

REPORT INFORMATION
  Report Type: 
  Country: None (occurrence: None)
  Receive Date: 20041223
  Receipt Date: 20041216
  Transmission Date: 20050328
  Serious: Yes (Death, Hospitalization)
  Sender: FDA-Public Use
  Company Number: GBWYE289017DEC04

PATIENT
  Age: 75 Year
  Sex: Female

DRUGS (6)
  1. ENBREL [Suspect]
     Indication: RHEUMATOID ARTHRITIS
     Route: 058
     Dates: start: 20040201, end: 20040801
  2. PREDNISOLONE [Concomitant]
     Indication: RHEUMATOID ARTHRITIS
     Route: 048
  3. ACTONEL (PROCTOR + GAMBLE) [Concomitant]
     Indication: OSTEOPOROSIS
     Route: 048
  4. CALCICHEW [Concomitant]
     Route: 048
  5. ACCUPRIL [Concomitant]
     Route: 048
  6. FERROUS SULFATE TAB [Concomitant]
     Route: 048

REACTIONS (4)
  - DEATH [None]
  - IMPAIRED HEALING [None]
  - INFECTED SKIN ULCER [None]
  - UNEVALUABLE EVENT [None]
